FAERS Safety Report 8623560-3 (Version None)
Quarter: 2012Q3

REPORT INFORMATION
  Report Type: 
  Country: None (occurrence: None)
  Receive Date: 20120824
  Receipt Date: 20120824
  Transmission Date: 20120928
  Serious: Yes (Other)
  Sender: FDA-Public Use
  Company Number: None

PATIENT
  Age: 34 Year
  Sex: Female
  Weight: 77.1115 kg

DRUGS (2)
  1. CIPROFLOXACIN [Suspect]
     Indication: DIVERTICULITIS
     Dosage: 500MG, ONCE A DAY, PO
     Route: 048
     Dates: start: 20080701, end: 20110901
  2. CIPROFLOXACIN [Suspect]
     Indication: DIVERTICULITIS
     Dosage: 500MG, ONCE A DAY, PO
     Route: 048
     Dates: start: 20080601, end: 20110801

REACTIONS (1)
  - FIBROMYALGIA [None]
